FAERS Safety Report 18409174 (Version 3)
Quarter: 2020Q4

REPORT INFORMATION
  Report Type: Report from Study
  Country: US (occurrence: US)
  Receive Date: 20201021
  Receipt Date: 20201123
  Transmission Date: 20210114
  Serious: Yes (Other)
  Sender: FDA-Public Use
  Company Number: US-BIOVITRUM-2020US5560

PATIENT
  Age: 44 Year
  Sex: Female

DRUGS (10)
  1. KINERET [Suspect]
     Active Substance: ANAKINRA
     Indication: SCHNITZLER^S SYNDROME
     Route: 058
     Dates: start: 20201008
  2. PEPCID [Concomitant]
     Active Substance: FAMOTIDINE
  3. PREDNISONE. [Suspect]
     Active Substance: PREDNISONE
     Indication: PRODUCT USED FOR UNKNOWN INDICATION
  4. PREDNISONE. [Suspect]
     Active Substance: PREDNISONE
  5. CLARITIN [Concomitant]
     Active Substance: LORATADINE
  6. KINERET [Suspect]
     Active Substance: ANAKINRA
     Indication: MONOCLONAL GAMMOPATHY
     Route: 058
     Dates: start: 20190925
  7. WELLBUTRIN [Concomitant]
     Active Substance: BUPROPION HYDROCHLORIDE
  8. LINZESS [Concomitant]
     Active Substance: LINACLOTIDE
  9. MIRALAX [Concomitant]
     Active Substance: POLYETHYLENE GLYCOL 3350
  10. CARAFATE [Concomitant]
     Active Substance: SUCRALFATE

REACTIONS (7)
  - Injection site pain [Not Recovered/Not Resolved]
  - Influenza like illness [Unknown]
  - Injection site mass [Unknown]
  - Injection site reaction [Unknown]
  - Off label use [Not Recovered/Not Resolved]
  - Gastric ulcer [Unknown]
  - Injection site bruising [Unknown]

NARRATIVE: CASE EVENT DATE: 20190925
